FAERS Safety Report 6000270-2 (Version None)
Quarter: 2008Q4

REPORT INFORMATION
  Report Type: 
  Country: None (occurrence: None)
  Receive Date: 20081215
  Receipt Date: 20081203
  Transmission Date: 20090506
  Serious: Yes (Other)
  Sender: FDA-Public Use
  Company Number: AU-PURDUE-DEU_2008_0004883

PATIENT
  Age: 50 Year
  Sex: Male

DRUGS (6)
  1. TRAMADOL HCL [Suspect]
     Indication: PAIN
     Dosage: 100 MG, SEE TEXT
     Route: 048
  2. TRAMADOL HCL [Suspect]
     Dosage: 50 MG, QID
     Route: 048
  3. OXYCODONE HCL [Suspect]
     Indication: PAIN
     Route: 048
  4. FENTANYL-100 [Suspect]
  5. VENLAFAXINE HCL [Suspect]
  6. CLONIDINE [Suspect]

REACTIONS (2)
  - DRUG INTERACTION [None]
  - SEROTONIN SYNDROME [None]
